FAERS Safety Report 15013184 (Version 1)
Quarter: 2018Q2

REPORT INFORMATION
  Report Type: Spontaneous
  Country: US (occurrence: US)
  Receive Date: 20180614
  Receipt Date: 20180614
  Transmission Date: 20180711
  Serious: Yes (Life-Threatening, Hospitalization, Other)
  Sender: FDA-Public Use
  Company Number: US-MYLANLABS-2018M1039217

PATIENT
  Age: 66 Year
  Sex: Female

DRUGS (1)
  1. QUINAPRIL. [Suspect]
     Active Substance: QUINAPRIL
     Indication: HYPERTENSION
     Route: 065

REACTIONS (3)
  - Haemorrhagic transformation stroke [Unknown]
  - Drug interaction [Recovering/Resolving]
  - Angioedema [Recovering/Resolving]
